FAERS Safety Report 7413254-4 (Version None)
Quarter: 2011Q2

REPORT INFORMATION
  Report Type: 
  Country: None (occurrence: None)
  Receive Date: 20110413
  Receipt Date: 20110330
  Transmission Date: 20111010
  Serious: Yes (Hospitalization)
  Sender: FDA-Public Use
  Company Number: CA-JNJFOC-20110400265

PATIENT
  Sex: Male
  Weight: 135 kg

DRUGS (1)
  1. REMICADE [Suspect]
     Indication: CROHN'S DISEASE
     Dosage: STARTED THE TREATMENT 10 YEARS AGO
     Route: 042

REACTIONS (3)
  - PALPITATIONS [None]
  - SLEEP DISORDER [None]
  - CHEST DISCOMFORT [None]
